FAERS Safety Report 26193439 (Version 2)
Quarter: 2025Q4

REPORT INFORMATION
  Report Type: Spontaneous
  Country: CN (occurrence: CN)
  Receive Date: 20251223
  Receipt Date: 20251229
  Transmission Date: 20260118
  Serious: Yes (Other)
  Sender: MERCK SHARP & DOHME LLC
  Company Number: CN-009507513-2361900

PATIENT
  Sex: Male
  Weight: 76.5 kg

DRUGS (21)
  1. PEMBROLIZUMAB [Suspect]
     Active Substance: PEMBROLIZUMAB
     Indication: Non-small cell lung cancer metastatic
     Dosage: DOSE: 200 MG
     Route: 042
     Dates: start: 20250704, end: 20250704
  2. PEMBROLIZUMAB [Suspect]
     Active Substance: PEMBROLIZUMAB
     Indication: Non-small cell lung cancer metastatic
     Dosage: DOSE: 200 MG
     Route: 042
     Dates: start: 20250730, end: 20250730
  3. LACTULOSE [Concomitant]
     Active Substance: LACTULOSE
     Dates: start: 20250704
  4. MORPHINE SULFATE [Concomitant]
     Active Substance: MORPHINE SULFATE
     Dates: start: 20250704
  5. LEUCOGEN [Concomitant]
     Active Substance: LEUCOGEN
     Dates: start: 20250714, end: 20250830
  6. ACETAMINOPHEN\OXYCODONE HYDROCHLORIDE [Concomitant]
     Active Substance: ACETAMINOPHEN\OXYCODONE HYDROCHLORIDE
     Dates: start: 2023
  7. AMLODIPINE BESYLATE [Concomitant]
     Active Substance: AMLODIPINE BESYLATE
     Dates: start: 2023
  8. TELMISARTAN [Concomitant]
     Active Substance: TELMISARTAN
     Dates: start: 2023
  9. CARBOPLATIN [Suspect]
     Active Substance: CARBOPLATIN
     Indication: Non-small cell lung cancer metastatic
     Dosage: DOSE: 642 MG
     Route: 042
     Dates: start: 20250704, end: 20250704
  10. CARBOPLATIN [Suspect]
     Active Substance: CARBOPLATIN
     Indication: Non-small cell lung cancer metastatic
     Dosage: DOSE: 453 MG
     Route: 042
     Dates: start: 20250730, end: 20250730
  11. PACLITAXEL [Suspect]
     Active Substance: PACLITAXEL
     Indication: Non-small cell lung cancer metastatic
     Dosage: DOSE:199 MG
     Route: 042
     Dates: start: 20250704, end: 20250704
  12. PACLITAXEL [Suspect]
     Active Substance: PACLITAXEL
     Indication: Non-small cell lung cancer metastatic
     Dosage: DOSE:192 MG
     Route: 042
     Dates: start: 20250711, end: 20250711
  13. PACLITAXEL [Suspect]
     Active Substance: PACLITAXEL
     Indication: Non-small cell lung cancer metastatic
     Dosage: DOSE:193 MG
     Route: 042
     Dates: start: 20250718, end: 20250718
  14. PACLITAXEL [Suspect]
     Active Substance: PACLITAXEL
     Indication: Non-small cell lung cancer metastatic
     Dosage: DOSE:144 MG
     Route: 042
     Dates: start: 20250730, end: 20250730
  15. PACLITAXEL [Suspect]
     Active Substance: PACLITAXEL
     Indication: Non-small cell lung cancer metastatic
     Dosage: DOSE:143 MG
     Route: 042
     Dates: start: 20250806, end: 20250806
  16. RECOMBINANT HUMAN THROMBOPOIETIN [Concomitant]
     Active Substance: RECOMBINANT HUMAN THROMBOPOIETIN
     Dates: start: 20250721, end: 20250726
  17. GRANULOCYTE COLONY-STIMULATING FACTOR NOS [Concomitant]
     Active Substance: GRANULOCYTE COLONY-STIMULATING FACTOR NOS
     Dates: start: 20250722, end: 20250726
  18. APREPITANT [Concomitant]
     Active Substance: APREPITANT
     Dates: start: 20250730, end: 20250730
  19. DEXAMETHASONE SODIUM PHOSPHATE [Concomitant]
     Active Substance: DEXAMETHASONE SODIUM PHOSPHATE
     Dates: start: 20250730, end: 20250730
  20. DIPHENHYDRAMINE [Concomitant]
     Active Substance: DIPHENHYDRAMINE
     Dates: start: 20250730, end: 20250730
  21. LIDOCAINE HYDROCHLORIDE [Concomitant]
     Active Substance: LIDOCAINE HYDROCHLORIDE
     Dates: start: 20250730, end: 20250830

REACTIONS (1)
  - Meningioma [Not Recovered/Not Resolved]

NARRATIVE: CASE EVENT DATE: 20251019
